FAERS Safety Report 11089915 (Version 1)
Quarter: 2015Q2

REPORT INFORMATION
  Report Type: Spontaneous
  Country: GB (occurrence: GB)
  Receive Date: 20150505
  Receipt Date: 20150505
  Transmission Date: 20150821
  Serious: Yes (Other)
  Sender: FDA-Public Use
  Company Number: GB-TEVA-559549ACC

PATIENT
  Age: 29 Year
  Sex: Female
  Weight: 66.67 kg

DRUGS (4)
  1. ONDANSETRON [Concomitant]
     Active Substance: ONDANSETRON
  2. PARACETAMOL [Concomitant]
     Active Substance: ACETAMINOPHEN
  3. THIAMINE [Concomitant]
     Active Substance: THIAMINE
  4. METOCLOPRAMIDE. [Suspect]
     Active Substance: METOCLOPRAMIDE
     Indication: HYPEREMESIS GRAVIDARUM
     Dosage: 30 MILLIGRAM DAILY;
     Route: 048
     Dates: start: 20150206

REACTIONS (5)
  - Panic attack [Recovered/Resolved]
  - Fatigue [Recovering/Resolving]
  - Nightmare [Recovered/Resolved]
  - Exposure during pregnancy [Unknown]
  - Anxiety [Recovered/Resolved]

NARRATIVE: CASE EVENT DATE: 20150207
